FAERS Safety Report 5648651-0 (Version None)
Quarter: 2008Q1

REPORT INFORMATION
  Report Type: 
  Country: None (occurrence: None)
  Receive Date: 20080304
  Receipt Date: 20080226
  Transmission Date: 20080703
  Serious: Yes (Death)
  Sender: FDA-Public Use
  Company Number: A0711954A

PATIENT
  Age: 76 Year
  Sex: Male

DRUGS (2)
  1. COREG CR [Suspect]
     Route: 048
     Dates: start: 20070101, end: 20080122
  2. NO CONCURRENT MEDICATION [Concomitant]

REACTIONS (1)
  - CARDIAC FAILURE [None]
